FAERS Safety Report 8101540 (Version 4)
Quarter: 2013Q3

REPORT INFORMATION
  Report Type: Spontaneous
  Country: GB (occurrence: GB)
  Receive Date: 20110823
  Receipt Date: 20130903
  Transmission Date: 20140515
  Serious: Yes (Hospitalization)
  Sender: FDA-Public Use
  Company Number: GB-SP-2011-07107

PATIENT
  Age: 69 Year
  Sex: Male
  Weight: 69.5 kg

DRUGS (4)
  1. IMMUCYST [Suspect]
     Indication: BLADDER CANCER
     Dosage: NOT REPORTED
     Route: 043
     Dates: start: 201102, end: 20110706
  2. VENTOLIN [Concomitant]
     Indication: ASTHMA
  3. INTAL [Concomitant]
     Indication: ASTHMA
  4. ENALAPRIL [Concomitant]
     Indication: HYPERTENSION

REACTIONS (11)
  - Disseminated tuberculosis [Recovering/Resolving]
  - Hypersensitivity [Recovering/Resolving]
  - Urosepsis [Recovering/Resolving]
  - Urethral injury [Recovering/Resolving]
  - Vomiting projectile [Recovering/Resolving]
  - Dyspnoea [Recovering/Resolving]
  - Asthenia [Recovering/Resolving]
  - Pyrexia [Recovering/Resolving]
  - Chills [Recovering/Resolving]
  - Cold sweat [Recovering/Resolving]
  - Haematuria [Recovering/Resolving]
